FAERS Safety Report 13049402 (Version 1)
Quarter: 2016Q4

REPORT INFORMATION
  Report Type: Spontaneous
  Country: BR (occurrence: BR)
  Receive Date: 20161221
  Receipt Date: 20161221
  Transmission Date: 20170207
  Serious: Yes (Other)
  Sender: FDA-Public Use
  Company Number: PHHY2016BR172307

PATIENT
  Sex: Female
  Weight: 77 kg

DRUGS (3)
  1. CALDE K2 [Concomitant]
     Active Substance: CALCIUM\MENAQUINONE 6\VITAMIN D
     Indication: OSTEOPOROSIS
     Dosage: UNK UNK, Q12MO
     Route: 048
  2. ACLASTA [Suspect]
     Active Substance: ZOLEDRONIC ACID
     Indication: OSTEOPOROSIS
     Dosage: UNK UNK, Q12MO
     Route: 048
  3. XOLAIR [Concomitant]
     Active Substance: OMALIZUMAB
     Indication: URTICARIA
     Dosage: UNK UNK, QMO
     Route: 041
     Dates: start: 201608, end: 20161031

REACTIONS (1)
  - Hypersensitivity [Unknown]
